FAERS Safety Report 9264013 (Version 3)
Quarter: 2014Q2

REPORT INFORMATION
  Report Type: Spontaneous
  Country: US (occurrence: US)
  Receive Date: 20130430
  Receipt Date: 20140429
  Transmission Date: 20141212
  Serious: Yes (Disabling, Other)
  Sender: FDA-Public Use
  Company Number: US-009507513-0410USA00324

PATIENT
  Sex: Male
  Weight: 98.87 kg

DRUGS (4)
  1. PROPECIA [Suspect]
     Indication: ALOPECIA
     Dosage: 1 MG, QD
     Route: 048
     Dates: start: 19990226, end: 20010803
  2. PROPECIA [Suspect]
     Indication: ANDROGENETIC ALOPECIA
     Dosage: 1 MG, QD
     Route: 048
     Dates: start: 20011217, end: 20050307
  3. PROPECIA [Suspect]
     Dosage: 1 MG, QD
     Route: 048
     Dates: start: 20050323, end: 20050729
  4. PROPECIA [Suspect]
     Dosage: 1 MG, QD
     Route: 048
     Dates: start: 20050829, end: 20070323

REACTIONS (23)
  - Anxiety [Not Recovered/Not Resolved]
  - Panic attack [Not Recovered/Not Resolved]
  - Erectile dysfunction [Not Recovered/Not Resolved]
  - Ejaculation disorder [Not Recovered/Not Resolved]
  - Sexual dysfunction [Not Recovered/Not Resolved]
  - Blood testosterone decreased [Unknown]
  - Libido decreased [Not Recovered/Not Resolved]
  - Penile size reduced [Unknown]
  - Cognitive disorder [Not Recovered/Not Resolved]
  - Depression [Not Recovered/Not Resolved]
  - Prostatitis [Recovering/Resolving]
  - Cough [Not Recovered/Not Resolved]
  - Testicular pain [Not Recovered/Not Resolved]
  - Social phobia [Unknown]
  - Attention deficit/hyperactivity disorder [Unknown]
  - Perennial allergy [Unknown]
  - Alcohol abuse [Unknown]
  - Multiple sclerosis [Unknown]
  - Tonsillectomy [Unknown]
  - Drug hypersensitivity [Unknown]
  - Gastrointestinal disorder [Unknown]
  - Drug ineffective [Unknown]
  - Supraventricular tachycardia [Unknown]
